FAERS Safety Report 4885104-1 (Version None)
Quarter: 2006Q1

REPORT INFORMATION
  Report Type: 
  Country: None (occurrence: None)
  Receive Date: 20060117
  Receipt Date: 20060105
  Transmission Date: 20060701
  Serious: Yes (Other)
  Sender: FDA-Public Use
  Company Number: 2006005848

PATIENT
  Age: 49 Year
  Sex: Female
  Weight: 62.5964 kg

DRUGS (3)
  1. ZOLOFT [Suspect]
     Indication: ANXIETY
     Dosage: 50 MG (50 MG, 1 IN 1 D)
     Dates: start: 20050101
  2. ASPIRIN [Concomitant]
  3. XANAX [Concomitant]

REACTIONS (6)
  - DRUG DOSE OMISSION [None]
  - HAEMATOCRIT DECREASED [None]
  - HAEMOGLOBIN DECREASED [None]
  - MULTIPLE SCLEROSIS [None]
  - PLATELET COUNT DECREASED [None]
  - RED BLOOD CELL COUNT DECREASED [None]
